FAERS Safety Report 6894681-0 (Version None)
Quarter: 2010Q3

REPORT INFORMATION
  Report Type: 
  Country: None (occurrence: None)
  Receive Date: 20100727
  Receipt Date: 20100712
  Transmission Date: 20110219
  Serious: Yes (Death, Other)
  Sender: FDA-Public Use
  Company Number: DSM-2010-01051

PATIENT
  Age: 71 Year
  Sex: Male

DRUGS (3)
  1. OLMESARTAN MEDOXOMIL [Suspect]
     Indication: PULMONARY ARTERIAL HYPERTENSION
     Dosage: 10 MG (1 IN 1 D), ORAL
     Route: 048
     Dates: start: 20100401
  2. BOSENTAN (BOSENTAN) (125 MILLIGRAM) (BOSENTAN) [Suspect]
     Indication: PULMONARY ARTERIAL HYPERTENSION
     Dosage: 250 MG (125 MG, 2 IN 1 D), ORAL
     Route: 048
     Dates: start: 20100401
  3. DYTIDE H (HYDROCHLOROTHIAZIDE, TRIAMTERENE) (HYDROCHLOROTHIAZIDE, TRIA [Suspect]
     Indication: PULMONARY ARTERIAL HYPERTENSION
     Dosage: 50/25 MG (1 IN 1 D), ORAL
     Route: 048
     Dates: start: 20100401

REACTIONS (5)
  - CHOLANGITIS [None]
  - PNEUMONIA [None]
  - RENAL FAILURE ACUTE [None]
  - RIGHT VENTRICULAR FAILURE [None]
  - SEPTIC SHOCK [None]
